FAERS Safety Report 25995950 (Version 1)
Quarter: 2025Q4

REPORT INFORMATION
  Report Type: Spontaneous
  Country: US (occurrence: US)
  Receive Date: 20251104
  Receipt Date: 20251104
  Transmission Date: 20260117
  Serious: No
  Sender: Haleon PLC
  Company Number: US-HALEON-2271663

PATIENT

DRUGS (6)
  1. VOLTAREN ARTHRITIS PAIN [Suspect]
     Active Substance: DICLOFENAC SODIUM
     Indication: Pain
  2. VOLTAREN ARTHRITIS PAIN [Suspect]
     Active Substance: DICLOFENAC SODIUM
     Indication: Muscle spasms
  3. VOLTAREN ARTHRITIS PAIN [Suspect]
     Active Substance: DICLOFENAC SODIUM
     Indication: Back pain
  4. ADVIL [Suspect]
     Active Substance: IBUPROFEN
     Indication: Pain
  5. ADVIL [Suspect]
     Active Substance: IBUPROFEN
     Indication: Back pain
  6. ADVIL [Suspect]
     Active Substance: IBUPROFEN
     Indication: Muscle spasms

REACTIONS (4)
  - Drug ineffective [Unknown]
  - Incorrect dose administered [Unknown]
  - Drug effect less than expected [Unknown]
  - Product administered at inappropriate site [Unknown]
